FAERS Safety Report 7270795-0 (Version None)
Quarter: 2011Q1

REPORT INFORMATION
  Report Type: 
  Country: None (occurrence: None)
  Receive Date: 20110202
  Receipt Date: 20110124
  Transmission Date: 20110831
  Serious: Yes (Hospitalization)
  Sender: FDA-Public Use
  Company Number: FR-ASTRAZENECA-2011SE04264

PATIENT
  Age: 33658 Day
  Sex: Male

DRUGS (5)
  1. PLAVIX [Suspect]
     Indication: CEREBROVASCULAR ACCIDENT
     Route: 048
  2. CRESTOR [Suspect]
     Indication: HYPERLIPIDAEMIA
     Route: 048
  3. KEPPRA [Suspect]
     Indication: EPILEPSY
     Route: 048
     Dates: start: 20101012
  4. AMLODIPINE [Suspect]
     Indication: HYPERTENSION
     Route: 048
  5. NEXIUM [Suspect]
     Route: 048

REACTIONS (4)
  - TOXIC SKIN ERUPTION [None]
  - LYMPHADENITIS [None]
  - RASH MACULO-PAPULAR [None]
  - LYMPHADENOPATHY [None]
